FAERS Safety Report 22251807 (Version 1)
Quarter: 2023Q2

REPORT INFORMATION
  Report Type: Spontaneous
  Country: CH (occurrence: CH)
  Receive Date: 20230425
  Receipt Date: 20230425
  Transmission Date: 20230722
  Serious: No
  Sender: FDA-Public Use
  Company Number: CH-Blueprint Medicines Corporation-SP-CH-2023-000672

PATIENT

DRUGS (1)
  1. AVAPRITINIB [Suspect]
     Active Substance: AVAPRITINIB
     Indication: Systemic mastocytosis
     Route: 065
     Dates: start: 202303

REACTIONS (7)
  - Dyspepsia [Unknown]
  - Taste disorder [Unknown]
  - Malaise [Unknown]
  - Periorbital oedema [Unknown]
  - Haemoglobin decreased [Unknown]
  - Blood creatinine increased [Unknown]
  - Liver function test increased [Unknown]
